FAERS Safety Report 8673500 (Version 2)
Quarter: 2012Q4

REPORT INFORMATION
  Report Type: 
  Country: US (occurrence: US)
  Receive Date: 20120719
  Receipt Date: 20121019
  Transmission Date: 20130627
  Serious: Yes (Disabling, Other)
  Sender: FDA-Public Use
  Company Number: US-BRISTOL-MYERS SQUIBB COMPANY-16504201

PATIENT
  Age: 86 Year
  Sex: Male

DRUGS (1)
  1. YERVOY [Suspect]
     Indication: METASTATIC MALIGNANT MELANOMA
     Dosage: No of inf:02,19Mar12:220mg
     Route: 042
     Dates: start: 20120227

REACTIONS (2)
  - Pancreatitis [Unknown]
  - Diarrhoea [Unknown]
